FAERS Safety Report 9260600 (Version 3)
Quarter: 2014Q2

REPORT INFORMATION
  Report Type: Report from Study
  Country: US (occurrence: US)
  Receive Date: 20130429
  Receipt Date: 20140421
  Transmission Date: 20141212
  Serious: Yes (Other)
  Sender: FDA-Public Use
  Company Number: US-ROCHE-1219110

PATIENT
  Age: 54 Year
  Sex: 0

DRUGS (3)
  1. RITUXIMAB [Suspect]
     Indication: CHRONIC LYMPHOCYTIC LEUKAEMIA
     Route: 042
     Dates: start: 20101215, end: 20110330
  2. CYCLOPHOSPHAMIDE [Concomitant]
     Route: 042
     Dates: start: 20101215, end: 20110330
  3. NIPENT [Concomitant]
     Route: 042
     Dates: start: 20101215, end: 20110330

REACTIONS (1)
  - Road traffic accident [Unknown]
